FAERS Safety Report 8715570 (Version 2)
Quarter: 2016Q1

REPORT INFORMATION
  Report Type: Spontaneous
  Country: US (occurrence: US)
  Receive Date: 20120809
  Receipt Date: 20160119
  Transmission Date: 20160526
  Serious: Yes (Other)
  Sender: FDA-Public Use
  Company Number: US-JNJFOC-20120715394

PATIENT
  Sex: Female

DRUGS (27)
  1. STOOL SOFTENER [Concomitant]
     Active Substance: DOCUSATE CALCIUM
     Route: 065
  2. MILK OF MAGNESIA [Concomitant]
     Active Substance: MAGNESIUM HYDROXIDE
     Route: 065
  3. ZOFRAN [Concomitant]
     Active Substance: ONDANSETRON HYDROCHLORIDE
     Route: 065
  4. VITAMINS NOS [Concomitant]
     Active Substance: VITAMINS
     Dosage: AS PRESCRIBED
     Route: 065
  5. SUDAFED PE CONGESTION [Suspect]
     Active Substance: PHENYLEPHRINE HYDROCHLORIDE
     Indication: PRODUCT USED FOR UNKNOWN INDICATION
     Route: 065
  6. PROMETHAZINE [Concomitant]
     Active Substance: PROMETHAZINE\PROMETHAZINE HYDROCHLORIDE
     Dosage: 1 TABLET EVERY 12 HRS AS NEEDED
     Route: 065
  7. PENTASA [Concomitant]
     Active Substance: MESALAMINE
     Route: 065
  8. DOXEPIN [Concomitant]
     Active Substance: DOXEPIN
     Indication: PRODUCT USED FOR UNKNOWN INDICATION
     Dosage: 2 CAPSULES AT BEDTIME
     Route: 065
  9. PREMARIN [Concomitant]
     Active Substance: ESTROGENS, CONJUGATED
     Indication: PRODUCT USED FOR UNKNOWN INDICATION
     Dosage: APPLY 1/2 STRIP DAILY
     Route: 065
  10. VITAMINS C [Concomitant]
     Route: 065
  11. VITAMIN D [Concomitant]
     Active Substance: CHOLECALCIFEROL
     Route: 065
  12. BIOTIN [Concomitant]
     Active Substance: BIOTIN
     Route: 065
  13. TRAMADOL. [Concomitant]
     Active Substance: TRAMADOL
     Indication: PAIN
     Dosage: TAKE 1 TABLET EVERY 6 HRS AS NEEDED
     Route: 065
  14. SIMVASTATIN. [Concomitant]
     Active Substance: SIMVASTATIN
     Dosage: TAKE 1 AT BEDTIME
     Route: 065
  15. FLEXERIL [Concomitant]
     Active Substance: CYCLOBENZAPRINE HYDROCHLORIDE
     Indication: PRODUCT USED FOR UNKNOWN INDICATION
     Dosage: TAKE 1 EVERY 8 HOURS AS NEEDED
     Route: 065
  16. XANAX [Concomitant]
     Active Substance: ALPRAZOLAM
     Dosage: TAKE  UPTO 1.5 MG DAILY
     Route: 065
  17. LINZESS [Concomitant]
     Active Substance: LINACLOTIDE
     Indication: PRODUCT USED FOR UNKNOWN INDICATION
     Dosage: TAKE 1 CAPSULE AT BEDTIME
     Route: 065
  18. ATENOLOL. [Concomitant]
     Active Substance: ATENOLOL
     Route: 065
  19. SEROQUEL [Concomitant]
     Active Substance: QUETIAPINE FUMARATE
     Dosage: TAKE 1 AT BEDTIME
     Route: 065
  20. LUNESTA [Concomitant]
     Active Substance: ESZOPICLONE
     Indication: PRODUCT USED FOR UNKNOWN INDICATION
     Dosage: TAKE 1 AT BEDTIME
     Route: 065
  21. CYMBALTA [Concomitant]
     Active Substance: DULOXETINE HYDROCHLORIDE
     Dosage: 2 CAPLETS AT BEDTIME
     Route: 065
  22. LEVOTHYROXINE. [Concomitant]
     Active Substance: LEVOTHYROXINE
     Route: 065
  23. LYRICA [Concomitant]
     Active Substance: PREGABALIN
     Dosage: FOR 90 DAYS
     Route: 048
  24. NEXIUM [Concomitant]
     Active Substance: ESOMEPRAZOLE MAGNESIUM
     Route: 065
  25. TRILIPIX [Concomitant]
     Active Substance: FENOFIBRIC ACID
     Route: 065
  26. FENOFIBRIC ACID. [Concomitant]
     Active Substance: FENOFIBRIC ACID
     Indication: PRODUCT USED FOR UNKNOWN INDICATION
     Dosage: TAKE 1 TABLET AT BEDTIME
     Route: 065
  27. VITAMIN B12 [Concomitant]
     Active Substance: CYANOCOBALAMIN
     Route: 065

REACTIONS (1)
  - Hallucination [Unknown]
